FAERS Safety Report 10018781 (Version 1)
Quarter: 2014Q1

REPORT INFORMATION
  Report Type: Spontaneous
  Country: US (occurrence: None)
  Receive Date: 20140314
  Receipt Date: 20140314
  Transmission Date: 20141002
  Serious: Yes (Other)
  Sender: FDA-Public Use
  Company Number: None

PATIENT
  Age: 73 Year
  Sex: Male
  Weight: 77.11 kg

DRUGS (2)
  1. ALL DAY PAIN RELIEF [Suspect]
     Indication: BACK PAIN
     Route: 048
     Dates: start: 20140313, end: 20140313
  2. ALL DAY PAIN RELIEF [Suspect]
     Indication: MYALGIA
     Route: 048
     Dates: start: 20140313, end: 20140313

REACTIONS (1)
  - Physical product label issue [None]
